FAERS Safety Report 26058717 (Version 1)
Quarter: 2025Q4

REPORT INFORMATION
  Report Type: Spontaneous
  Country: US (occurrence: US)
  Receive Date: 20251118
  Receipt Date: 20251118
  Transmission Date: 20260118
  Serious: No
  Sender: CONCORD BIOTECH LTD
  Company Number: US-CBL-003529

PATIENT
  Age: 24 Year
  Sex: Female

DRUGS (15)
  1. MYCOPHENOLATE MOFETIL [Suspect]
     Active Substance: MYCOPHENOLATE MOFETIL
     Indication: Mixed connective tissue disease
     Route: 048
     Dates: start: 202408, end: 20251105
  2. GABAPENTIN [Concomitant]
     Active Substance: GABAPENTIN
     Indication: Pain
     Route: 065
  3. TRILEPTAL [Concomitant]
     Active Substance: OXCARBAZEPINE
     Indication: Affective disorder
     Dosage: 2-TAB AM 3-TAB PM
     Route: 065
     Dates: start: 2020
  4. BENLYSTA [Concomitant]
     Active Substance: BELIMUMAB
     Indication: Systemic lupus erythematosus
     Route: 065
     Dates: start: 2024
  5. LOSARTAN [Concomitant]
     Active Substance: LOSARTAN
     Indication: Mixed connective tissue disease
     Route: 065
     Dates: start: 2024, end: 20251105
  6. TYLENOL [Concomitant]
     Active Substance: ACETAMINOPHEN
     Indication: Pain
     Dosage: PRN
     Route: 065
     Dates: start: 2025
  7. AMLODIPINE [Concomitant]
     Active Substance: AMLODIPINE BESYLATE
     Indication: Mixed connective tissue disease
     Route: 065
     Dates: start: 2024
  8. PREDNISONE [Concomitant]
     Active Substance: PREDNISONE
     Indication: Mixed connective tissue disease
     Route: 065
     Dates: start: 202507
  9. METHYLPHENIDATE [Concomitant]
     Active Substance: METHYLPHENIDATE
     Indication: Attention deficit hyperactivity disorder
     Route: 065
     Dates: start: 2020
  10. ALBUTEROL [Concomitant]
     Active Substance: ALBUTEROL
     Indication: Asthma
     Dosage: INHALER PRN WHEN SICK
     Route: 065
  11. HYDROXYCHLOROQUINE [Concomitant]
     Active Substance: HYDROXYCHLOROQUINE
     Indication: Mixed connective tissue disease
     Route: 065
     Dates: start: 2024
  12. PANTOPRAZOLE [Concomitant]
     Active Substance: PANTOPRAZOLE
     Indication: Gastrooesophageal reflux disease
     Route: 065
     Dates: start: 2024
  13. OZEMPIC [Concomitant]
     Active Substance: SEMAGLUTIDE
     Indication: Weight
     Route: 065
     Dates: start: 2024
  14. THYROID [Concomitant]
     Active Substance: LEVOTHYROXINE\LIOTHYRONINE
     Indication: Hypothyroidism
     Route: 065
     Dates: start: 2017
  15. MELATONIN [Concomitant]
     Active Substance: MELATONIN
     Indication: Sleep disorder
     Dosage: AT BEDTIME
     Route: 065
     Dates: start: 2010

REACTIONS (2)
  - Exposure during pregnancy [Unknown]
  - Product use in unapproved indication [Unknown]
